FAERS Safety Report 12419453 (Version 1)
Quarter: 2016Q2

REPORT INFORMATION
  Report Type: Spontaneous
  Country: US (occurrence: None)
  Receive Date: 20160527
  Receipt Date: 20160527
  Transmission Date: 20160815
  Serious: Yes (Life-Threatening)
  Sender: FDA-Public Use
  Company Number: None

PATIENT
  Age: 29 Year
  Sex: Female
  Weight: 103.42 kg

DRUGS (1)
  1. FERAHEME [Suspect]
     Active Substance: FERUMOXYTOL NON-STOICHIOMETRIC MAGNETITE
     Indication: IRON DEFICIENCY ANAEMIA
     Route: 041
     Dates: start: 20160520, end: 20160520

REACTIONS (4)
  - Dyskinesia [None]
  - Unresponsive to stimuli [None]
  - Oxygen saturation decreased [None]
  - Restlessness [None]

NARRATIVE: CASE EVENT DATE: 20160520
